FAERS Safety Report 6643575-4 (Version None)
Quarter: 2010Q1

REPORT INFORMATION
  Report Type: 
  Country: None (occurrence: None)
  Receive Date: 20100320
  Receipt Date: 20100317
  Transmission Date: 20100710
  Serious: Yes (Other)
  Sender: FDA-Public Use
  Company Number: US-ROXANE LABORATORIES, INC.-2010-RO-00289RO

PATIENT

DRUGS (1)
  1. MORPHINE [Suspect]

REACTIONS (1)
  - MEDICATION ERROR [None]
